FAERS Safety Report 8879985 (Version 1)
Quarter: 2012Q4

REPORT INFORMATION
  Report Type: 
  Country: US (occurrence: US)
  Receive Date: 20121031
  Receipt Date: 20121031
  Transmission Date: 20130627
  Serious: Yes (Other)
  Sender: FDA-Public Use
  Company Number: US-ASTRAZENECA-2012SE80120

PATIENT
  Age: 58 Year
  Sex: Male

DRUGS (12)
  1. NEXIUM [Suspect]
     Indication: GASTROOESOPHAGEAL REFLUX DISEASE
     Route: 048
  2. PREDNISONE [Concomitant]
     Indication: INTERSTITIAL LUNG DISEASE
  3. OXYGEN [Concomitant]
     Indication: INTERSTITIAL LUNG DISEASE
     Dosage: 4 LITERS PER MINUTE
     Route: 045
  4. DEMADEX [Concomitant]
     Indication: DIURETIC THERAPY
     Route: 048
  5. POTASSIUM [Concomitant]
     Indication: SUPPLEMENTATION THERAPY
     Route: 048
  6. ASPIRIN [Concomitant]
     Indication: ANTICOAGULANT THERAPY
     Route: 048
  7. LOSARTAN POTASSIUM [Concomitant]
     Indication: CARDIAC DISORDER
     Route: 048
  8. PLAVIX [Concomitant]
     Indication: CARDIAC DISORDER
     Route: 048
  9. LOPRESSOR [Concomitant]
     Indication: BLOOD PRESSURE
     Route: 048
  10. NITROGLYCERINE [Concomitant]
     Indication: CHEST PAIN
     Dosage: PRN
     Route: 050
  11. IBUPROPHEN [Concomitant]
     Indication: PAIN
     Route: 048
  12. TAZEPAM [Concomitant]
     Indication: SLEEP DISORDER
     Route: 048

REACTIONS (3)
  - Osteoarthritis [Unknown]
  - Gastrooesophageal reflux disease [Unknown]
  - Drug dose omission [Unknown]
